FAERS Safety Report 8969862 (Version 4)
Quarter: 2013Q3

REPORT INFORMATION
  Report Type: Spontaneous
  Country: US (occurrence: US)
  Receive Date: 20121218
  Receipt Date: 20130724
  Transmission Date: 20140515
  Serious: Yes (Other)
  Sender: FDA-Public Use
  Company Number: US-ROXANE LABORATORIES, INC.-2012-RO-02588RO

PATIENT
  Age: 61 Year
  Sex: Male
  Weight: 72 kg

DRUGS (9)
  1. MERCAPTOPURINE [Suspect]
     Indication: CROHN^S DISEASE
     Dosage: 50 MG
     Route: 048
     Dates: start: 1998, end: 20120516
  2. PENTASA [Concomitant]
     Dosage: 3 MG
     Dates: start: 20121010
  3. ATENOLOL [Concomitant]
  4. B12 [Concomitant]
     Dates: start: 1990
  5. FOLIC ACID [Concomitant]
     Dates: start: 1990
  6. MULTIVITAMIN [Concomitant]
     Dates: start: 1990
  7. CACLIUM PLUS VITAMIN D [Concomitant]
     Dates: start: 1990
  8. VALIUM [Concomitant]
     Dates: start: 1990
  9. PREDNISONE [Concomitant]
     Dates: start: 1996, end: 20120520

REACTIONS (5)
  - Platelet count decreased [Not Recovered/Not Resolved]
  - Hepatic cirrhosis [Not Recovered/Not Resolved]
  - Varices oesophageal [Not Recovered/Not Resolved]
  - Portal hypertension [Not Recovered/Not Resolved]
  - Chronic hepatitis [Not Recovered/Not Resolved]
